FAERS Safety Report 14991041 (Version 1)
Quarter: 2018Q2

REPORT INFORMATION
  Report Type: Spontaneous
  Country: US (occurrence: US)
  Receive Date: 20180608
  Receipt Date: 20180608
  Transmission Date: 20180711
  Serious: Yes (Hospitalization)
  Sender: FDA-Public Use
  Company Number: US-VIFOR (INTERNATIONAL) INC.-VIT-2016-06938

PATIENT
  Age: 81 Year
  Sex: Male

DRUGS (8)
  1. FINASTERIDE. [Concomitant]
     Active Substance: FINASTERIDE
  2. ERGOCALCIFEROL. [Concomitant]
     Active Substance: ERGOCALCIFEROL
  3. BUPROPION. [Concomitant]
     Active Substance: BUPROPION
  4. SODIUM BICARBONATE. [Concomitant]
     Active Substance: SODIUM BICARBONATE
  5. VELTASSA [Suspect]
     Active Substance: PATIROMER
     Indication: HYPERKALAEMIA
     Route: 048
     Dates: start: 20160819
  6. LIPITOR [Concomitant]
     Active Substance: ATORVASTATIN CALCIUM
  7. SEROQUEL [Concomitant]
     Active Substance: QUETIAPINE FUMARATE
  8. BENAZEPRIL [Concomitant]
     Active Substance: BENAZEPRIL HYDROCHLORIDE

REACTIONS (2)
  - Surgery [Unknown]
  - Drug dose omission [Recovered/Resolved]

NARRATIVE: CASE EVENT DATE: 201609
